FAERS Safety Report 4890774-8 (Version None)
Quarter: 2006Q1

REPORT INFORMATION
  Report Type: 
  Country: None (occurrence: None)
  Receive Date: 20060123
  Receipt Date: 20060110
  Transmission Date: 20060701
  Serious: Yes (Other)
  Sender: FDA-Public Use
  Company Number: 2006BH000441

PATIENT
  Age: 9 Day
  Sex: Female

DRUGS (4)
  1. VANCOMYCIN HCL [Suspect]
     Indication: STAPHYLOCOCCAL INFECTION
     Dosage: 20 MG/KG; Q16H/3 DOSE
  2. AMPICILLIN SODIUM [Concomitant]
  3. GENTAMICIN [Concomitant]
  4. LUNG SURFACTANTS [Concomitant]

REACTIONS (5)
  - BLOOD CREATININE INCREASED [None]
  - BLOOD URINE PRESENT [None]
  - OVERDOSE [None]
  - PROTEIN URINE PRESENT [None]
  - WRONG TECHNIQUE IN DRUG USAGE PROCESS [None]
